FAERS Safety Report 4287444-6 (Version None)
Quarter: 2004Q1

REPORT INFORMATION
  Report Type: 
  Country: None (occurrence: None)
  Receive Date: 20040209
  Receipt Date: 20030630
  Transmission Date: 20041129
  Serious: No
  Sender: FDA-Public Use
  Company Number: US-GLAXOSMITHKLINE-A0414377A

PATIENT
  Age: 34 Year
  Sex: Female

DRUGS (2)
  1. PAXIL CR [Suspect]
     Indication: ANXIETY
     Dates: start: 20021101
  2. AMOXICILLIN [Concomitant]

REACTIONS (5)
  - EAR INFECTION [None]
  - EYE SWELLING [None]
  - NASOPHARYNGITIS [None]
  - SWELLING FACE [None]
  - URTICARIA [None]
